FAERS Safety Report 7332560-5 (Version None)
Quarter: 2011Q1

REPORT INFORMATION
  Report Type: 
  Country: None (occurrence: None)
  Receive Date: 20110304
  Receipt Date: 20110221
  Transmission Date: 20110831
  Serious: Yes (Hospitalization)
  Sender: FDA-Public Use
  Company Number: JP-BRISTOL-MYERS SQUIBB COMPANY-14688295

PATIENT
  Age: 64 Year
  Sex: Female
  Weight: 51 kg

DRUGS (14)
  1. VINCRISTINE SULFATE [Suspect]
     Indication: ACUTE LYMPHOCYTIC LEUKAEMIA
     Route: 042
     Dates: start: 20090325, end: 20090325
  2. REBAMIPIDE [Concomitant]
     Indication: INFECTION
     Route: 048
     Dates: start: 20090404, end: 20090410
  3. POLYMYXIN-B-SULFATE [Concomitant]
     Indication: INFECTION
     Dosage: 1 DF - 300000 UNITS
     Route: 048
     Dates: start: 20090404, end: 20090410
  4. FUNGIZONE [Concomitant]
     Indication: INFECTION
     Dosage: FORM SOL
     Route: 048
     Dates: start: 20090404, end: 20090410
  5. DAUNORUBICIN HCL [Suspect]
     Indication: ACUTE LYMPHOCYTIC LEUKAEMIA
     Route: 042
     Dates: start: 20090325, end: 20090325
  6. CYCLOPHOSPHAMIDE [Suspect]
     Indication: ACUTE LYMPHOCYTIC LEUKAEMIA
     Route: 042
     Dates: start: 20090325, end: 20090325
  7. VANCOMYCIN HCL [Concomitant]
     Dosage: GRAN;POWDER
     Route: 048
     Dates: start: 20090402, end: 20090408
  8. CYTARABINE [Concomitant]
     Indication: ACUTE LYMPHOCYTIC LEUKAEMIA
     Dosage: FORM INJ
     Dates: start: 20090325, end: 20090325
  9. METHOTREXATE [Concomitant]
     Indication: ACUTE LYMPHOCYTIC LEUKAEMIA
     Dosage: FORM INJ
     Dates: start: 20090325, end: 20090325
  10. PREDNISOLONE [Concomitant]
     Indication: ACUTE LYMPHOCYTIC LEUKAEMIA
     Dosage: FORM TABS
     Route: 048
     Dates: start: 20090325, end: 20090331
  11. SPRYCEL [Suspect]
     Indication: ACUTE LYMPHOCYTIC LEUKAEMIA
     Dosage: 26MAR09 TO 14APR09; 28APR09 TO 15MAY09; AND 27MAY09 TO 15JUN09
     Route: 048
     Dates: start: 20090326, end: 20090617
  12. FILGRASTIM [Concomitant]
     Dosage: FORM INJ
     Route: 058
     Dates: start: 20090403, end: 20090408
  13. CLOSTRIDIUM BUTYRICUM [Concomitant]
     Route: 048
     Dates: start: 20090403, end: 20090410
  14. SULFAMETHOXAZOLE AND TRIMETHOPRIM [Concomitant]
     Indication: INFECTION
     Route: 048
     Dates: start: 20090404, end: 20090410

REACTIONS (5)
  - WHITE BLOOD CELL COUNT DECREASED [None]
  - NEUTROPHIL COUNT DECREASED [None]
  - PLATELET COUNT DECREASED [None]
  - ANAEMIA [None]
  - CYTOMEGALOVIRUS ENTEROCOLITIS [None]
